FAERS Safety Report 9724919 (Version 1)
Quarter: 2013Q4

REPORT INFORMATION
  Report Type: Spontaneous
  Country: US (occurrence: US)
  Receive Date: 20131202
  Receipt Date: 20131202
  Transmission Date: 20140711
  Serious: No
  Sender: FDA-Public Use
  Company Number: US-ENDO PHARMACEUTICALS INC.-OXYC20120059

PATIENT
  Age: 34 Year
  Sex: Male
  Weight: 92.16 kg

DRUGS (1)
  1. OXYCODONE [Suspect]
     Indication: PAIN
     Route: 048
     Dates: start: 20121015

REACTIONS (1)
  - Drug ineffective [Not Recovered/Not Resolved]
